FAERS Safety Report 21032349 (Version 3)
Quarter: 2022Q3

REPORT INFORMATION
  Report Type: Report from Study
  Country: DE (occurrence: DE)
  Receive Date: 20220701
  Receipt Date: 20220831
  Transmission Date: 20221027
  Serious: Yes (Hospitalization)
  Sender: FDA-Public Use
  Company Number: DE-CELLTRION INC.-2022DE010190

PATIENT

DRUGS (80)
  1. RITUXIMAB [Suspect]
     Active Substance: RITUXIMAB
     Indication: Diffuse large B-cell lymphoma
     Dosage: 375 MILLIGRAM/SQ. METER EVERY 3 WEEKS; DATE OF MOST RECENT DOSE (375 MG/M2) OF STUDY DRUG PRIOR TO S
     Route: 042
     Dates: start: 20220406
  2. DOXORUBICIN [Suspect]
     Active Substance: DOXORUBICIN
     Indication: Diffuse large B-cell lymphoma
     Dosage: 111 MG/M2 EVERY 3 WEEKS; DATE OF MOST RECENT DOSE (50 MG/M2) OF STUDY DRUG PRIOR TO SAE: 27/APR/2022
     Route: 048
     Dates: start: 20220407
  3. PREDNISOLONE [Suspect]
     Active Substance: PREDNISOLONE
     Indication: Diffuse large B-cell lymphoma
     Dosage: 100 MG; DATE OF MOST RECENT DOSE OF STUDY DRUG PRIOR TO SAE: 27/APR/2022, 22/MAY/2022
     Route: 042
     Dates: start: 20220406
  4. PREDNISOLONE [Suspect]
     Active Substance: PREDNISOLONE
     Dosage: 100 MG
     Route: 042
     Dates: start: 20220802, end: 20220802
  5. CYCLOPHOSPHAMIDE [Suspect]
     Active Substance: CYCLOPHOSPHAMIDE
     Indication: Diffuse large B-cell lymphoma
     Dosage: 1665 MILLIGRAM/SQ. METER EVERY 3 WEEKS, DATE OF MOST RECENT DOSE (750 MG/M2) OF STUDY DRUG PRIOR TO
     Route: 042
     Dates: start: 20220407
  6. GLOFITAMAB [Suspect]
     Active Substance: GLOFITAMAB
     Indication: Diffuse large B-cell lymphoma
     Dosage: 2.5 MILLIGRAM EVERY 3 WEEKS,  DATE OF MOST RECENT DOSE (10 MG) OF STUDY DRUG PRIOR TO SAE: 11/MAY/20
     Route: 042
     Dates: start: 20220504
  7. GLOFITAMAB [Suspect]
     Active Substance: GLOFITAMAB
     Dosage: UNK
  8. POLATUZUMAB VEDOTIN [Suspect]
     Active Substance: POLATUZUMAB VEDOTIN
     Indication: Diffuse large B-cell lymphoma
     Dosage: UNK
  9. POLATUZUMAB VEDOTIN [Suspect]
     Active Substance: POLATUZUMAB VEDOTIN
     Dosage: 203.4 MG; DAY 1 OF EACH 21-DAY CYCLE LAST THERAPY BEFORE SAE ON 18/MAY/2022 (C3D1) FROM 13:55 TO 14:
     Route: 042
     Dates: start: 20220407
  10. FOLIC ACID [Concomitant]
     Active Substance: FOLIC ACID
     Indication: Folate deficiency
     Dosage: UNK
  11. CHOLECALCIFEROL [Concomitant]
     Active Substance: CHOLECALCIFEROL
     Indication: Vitamin D deficiency
     Dosage: UNK
  12. RAMIPRIL [Concomitant]
     Active Substance: RAMIPRIL
     Indication: Hypertension
  13. PANTOPRAZOLE [Concomitant]
     Active Substance: PANTOPRAZOLE
     Indication: Prophylaxis
     Dosage: UNK
  14. CITALOPRAM [Concomitant]
     Active Substance: CITALOPRAM HYDROBROMIDE
     Indication: Depression
  15. ACYCLOVIR [Concomitant]
     Active Substance: ACYCLOVIR
     Dosage: UNK
     Dates: start: 20220321
  16. ACETAMINOPHEN [Concomitant]
     Active Substance: ACETAMINOPHEN
     Indication: Headache
     Dosage: 1000 MILLIGRAM
     Dates: start: 20220504, end: 20220504
  17. ACETAMINOPHEN [Concomitant]
     Active Substance: ACETAMINOPHEN
     Dosage: 1000 MILLIGRAM
     Dates: start: 20220511, end: 20220511
  18. ACETAMINOPHEN [Concomitant]
     Active Substance: ACETAMINOPHEN
     Dosage: 1000 MILLIGRAM
     Dates: start: 20220427, end: 20220427
  19. ACETAMINOPHEN [Concomitant]
     Active Substance: ACETAMINOPHEN
     Dosage: 1000 MILLIGRAM
     Dates: start: 20220518, end: 20220518
  20. ACETAMINOPHEN [Concomitant]
     Active Substance: ACETAMINOPHEN
     Dosage: 1000 MG
     Dates: start: 20220621, end: 20220621
  21. ACETAMINOPHEN [Concomitant]
     Active Substance: ACETAMINOPHEN
     Dosage: 1000 MG
     Dates: start: 20220719, end: 20220719
  22. ACETAMINOPHEN [Concomitant]
     Active Substance: ACETAMINOPHEN
     Dosage: 1000 MG
     Dates: start: 20220629, end: 20220629
  23. ACETAMINOPHEN [Concomitant]
     Active Substance: ACETAMINOPHEN
     Dosage: 1000 MG
     Dates: start: 20220802, end: 20220802
  24. ACETAMINOPHEN [Concomitant]
     Active Substance: ACETAMINOPHEN
     Dosage: 1000 MG
     Dates: start: 20220712, end: 20220712
  25. ACETAMINOPHEN [Concomitant]
     Active Substance: ACETAMINOPHEN
     Dosage: UNK
     Dates: start: 20220427, end: 20220427
  26. ACETAMINOPHEN [Concomitant]
     Active Substance: ACETAMINOPHEN
     Dosage: 1000 MG
     Dates: start: 20220530, end: 20220530
  27. CLEMASTINE [Concomitant]
     Active Substance: CLEMASTINE
     Dosage: 2 MG
     Dates: start: 20220802, end: 20220802
  28. CLEMASTINE [Concomitant]
     Active Substance: CLEMASTINE
     Dosage: 2 MG
     Dates: start: 20220530, end: 20220530
  29. CLEMASTINE [Concomitant]
     Active Substance: CLEMASTINE
     Dosage: 2 MG
     Dates: start: 20220427, end: 20220427
  30. CLEMASTINE [Concomitant]
     Active Substance: CLEMASTINE
     Dosage: 2 MG
     Dates: start: 20220629, end: 20220629
  31. CLEMASTINE [Concomitant]
     Active Substance: CLEMASTINE
     Dosage: 2 MG
     Dates: start: 20220504, end: 20220504
  32. CLEMASTINE [Concomitant]
     Active Substance: CLEMASTINE
     Dosage: 2 MG
     Dates: start: 20220621, end: 20220621
  33. CLEMASTINE [Concomitant]
     Active Substance: CLEMASTINE
     Dosage: 2 MG
     Dates: start: 20220518, end: 20220518
  34. CLEMASTINE [Concomitant]
     Active Substance: CLEMASTINE
     Dosage: 2 MG
     Dates: start: 20220511, end: 20220511
  35. CLEMASTINE [Concomitant]
     Active Substance: CLEMASTINE
     Dosage: 2 MG
     Dates: start: 20220719, end: 20220719
  36. CLEMASTINE [Concomitant]
     Active Substance: CLEMASTINE
     Dosage: 2 MG
     Dates: start: 20220712, end: 20220712
  37. LEVOTHYROXINE [Concomitant]
     Active Substance: LEVOTHYROXINE
     Indication: Hypothyroidism
     Dosage: UNK
  38. GRANISETRON [Concomitant]
     Active Substance: GRANISETRON
     Dosage: 1 MILLIGRAM
     Dates: start: 20220427, end: 20220427
  39. GRANISETRON [Concomitant]
     Active Substance: GRANISETRON
     Dosage: 1 MILLIGRAM
     Dates: start: 20220518, end: 20220518
  40. GRANISETRON [Concomitant]
     Active Substance: GRANISETRON
     Dosage: 1 MG
     Dates: start: 20220621, end: 20220621
  41. GRANISETRON [Concomitant]
     Active Substance: GRANISETRON
     Dosage: 1 MG
     Dates: start: 20220802, end: 20220802
  42. GRANISETRON [Concomitant]
     Active Substance: GRANISETRON
     Dosage: 1 MG
     Dates: start: 20220712, end: 20220712
  43. AMLODIPINE [Concomitant]
     Active Substance: AMLODIPINE BESYLATE
     Indication: Hypertension
     Dosage: UNK
  44. DEXAMETHASONE [Concomitant]
     Active Substance: DEXAMETHASONE
     Dosage: 20 MG
     Dates: start: 20220530, end: 20220530
  45. DEXAMETHASONE [Concomitant]
     Active Substance: DEXAMETHASONE
     Dosage: 20 MG
     Dates: start: 20220719, end: 20220719
  46. DEXAMETHASONE [Concomitant]
     Active Substance: DEXAMETHASONE
     Dosage: 20 MG
     Dates: start: 20220629, end: 20220629
  47. DEXAMETHASONE [Concomitant]
     Active Substance: DEXAMETHASONE
     Dosage: 20 MG
     Dates: start: 20220504, end: 20220504
  48. SODIUM CHLORIDE [Concomitant]
     Active Substance: SODIUM CHLORIDE
     Dosage: 1000 MILLILITER
     Dates: start: 20220427, end: 20220427
  49. SODIUM CHLORIDE [Concomitant]
     Active Substance: SODIUM CHLORIDE
     Dosage: 1000 MILLILITER
     Dates: start: 20220511, end: 20220511
  50. SODIUM CHLORIDE [Concomitant]
     Active Substance: SODIUM CHLORIDE
     Dosage: 1000 MILLILITER
     Dates: start: 20220504, end: 20220504
  51. SODIUM CHLORIDE [Concomitant]
     Active Substance: SODIUM CHLORIDE
     Dosage: 1000 MILLILITER
     Dates: start: 20220518, end: 20220518
  52. SODIUM CHLORIDE [Concomitant]
     Active Substance: SODIUM CHLORIDE
     Dosage: 1000 ML
     Dates: start: 20220719, end: 20220719
  53. SODIUM CHLORIDE [Concomitant]
     Active Substance: SODIUM CHLORIDE
     Dosage: 1000 ML
     Dates: start: 20220712, end: 20220712
  54. SODIUM CHLORIDE [Concomitant]
     Active Substance: SODIUM CHLORIDE
     Dosage: 1000 ML
     Dates: start: 20220530, end: 20220530
  55. SODIUM CHLORIDE [Concomitant]
     Active Substance: SODIUM CHLORIDE
     Dosage: 1000 ML
     Dates: start: 20220621, end: 20220621
  56. SODIUM CHLORIDE [Concomitant]
     Active Substance: SODIUM CHLORIDE
     Dosage: 1000 ML
     Dates: start: 20220629, end: 20220629
  57. SODIUM CHLORIDE [Concomitant]
     Active Substance: SODIUM CHLORIDE
     Dosage: 1000 ML
     Dates: start: 20220802, end: 20220802
  58. SULFAMETHOXAZOLE\TRIMETHOPRIM [Concomitant]
     Active Substance: SULFAMETHOXAZOLE\TRIMETHOPRIM
     Indication: Infection prophylaxis
     Dosage: UNK
     Dates: start: 20220321
  59. MESNA [Concomitant]
     Active Substance: MESNA
     Dosage: 400 MILLLIGRAM
     Dates: start: 20220427, end: 20220427
  60. MESNA [Concomitant]
     Active Substance: MESNA
     Dosage: 400 MILLLIGRAM
     Dates: start: 20220518, end: 20220518
  61. MESNA [Concomitant]
     Active Substance: MESNA
     Dosage: 400 MG
     Dates: start: 20220621, end: 20220621
  62. MESNA [Concomitant]
     Active Substance: MESNA
     Dosage: 400 MG
     Dates: start: 20220712, end: 20220712
  63. MESNA [Concomitant]
     Active Substance: MESNA
     Dosage: 400 MG
     Dates: start: 20220802, end: 20220802
  64. CIPROFLOXACIN [Concomitant]
     Active Substance: CIPROFLOXACIN
     Indication: Neutropenia
     Dosage: UNK
     Dates: start: 20220720
  65. AMPHO-MORONAL [Concomitant]
     Active Substance: AMPHOTERICIN B
     Indication: Mucosal inflammation
     Dosage: UNK
     Dates: start: 20220511, end: 20220518
  66. NEULASTA [Concomitant]
     Active Substance: PEGFILGRASTIM
     Indication: Prophylaxis
     Dosage: UNK
     Dates: start: 20220519, end: 20220519
  67. NEULASTA [Concomitant]
     Active Substance: PEGFILGRASTIM
     Indication: Neutropenia
     Dosage: UNK
     Dates: start: 20220428, end: 20220428
  68. ENOXAPARIN SODIUM [Concomitant]
     Active Substance: ENOXAPARIN SODIUM
     Indication: Medical device site thrombosis
     Dosage: UNK
     Dates: start: 20220525, end: 20220526
  69. ENOXAPARIN SODIUM [Concomitant]
     Active Substance: ENOXAPARIN SODIUM
     Dosage: UNK
     Dates: start: 20220602, end: 20220620
  70. VALACYCLOVIR HYDROCHLORIDE [Concomitant]
     Active Substance: VALACYCLOVIR HYDROCHLORIDE
     Indication: Herpes simplex
     Dosage: UNK
     Dates: start: 20220609, end: 20220613
  71. VALACYCLOVIR HYDROCHLORIDE [Concomitant]
     Active Substance: VALACYCLOVIR HYDROCHLORIDE
     Dosage: UNK
     Dates: start: 20220608, end: 20220613
  72. CITRIC ACID MONOHYDRATE\POTASSIUM BICARBONATE\POTASSIUM CITRATE [Concomitant]
     Active Substance: CITRIC ACID MONOHYDRATE\POTASSIUM BICARBONATE\POTASSIUM CITRATE
     Dosage: UNK
     Dates: start: 20220526, end: 20220527
  73. POTASSIUM [Concomitant]
     Active Substance: POTASSIUM
     Dosage: UNK
     Dates: start: 20220719, end: 20220719
  74. SUCRALFATE [Concomitant]
     Active Substance: SUCRALFATE
     Dosage: UNK
     Dates: start: 20220725
  75. APREPITANT [Concomitant]
     Active Substance: APREPITANT
     Dosage: UNK
     Dates: start: 20220621, end: 20220623
  76. JONOSTERIL [CALCIUM ACETATE;MAGNESIUM ACETATE TETRAHYDRATE;POTASSIUM A [Concomitant]
     Indication: Nausea
     Dosage: UNK
     Dates: start: 20220719, end: 20220719
  77. PREDNISOLONE SODIUM SUCCINATE [Concomitant]
     Active Substance: PREDNISOLONE SODIUM SUCCINATE
     Dosage: 100 MG
     Dates: start: 20220802, end: 20220802
  78. PREDNISOLONE SODIUM SUCCINATE [Concomitant]
     Active Substance: PREDNISOLONE SODIUM SUCCINATE
     Dosage: 100 MG
     Dates: start: 20220712, end: 20220712
  79. AMOXICILLIN\CLAVULANATE POTASSIUM [Concomitant]
     Active Substance: AMOXICILLIN\CLAVULANATE POTASSIUM
     Dosage: UNK
     Dates: start: 20220725
  80. ZOFRAN [Concomitant]
     Active Substance: ONDANSETRON HYDROCHLORIDE
     Indication: Vomiting
     Dosage: UNK
     Dates: start: 20220427, end: 20220428

REACTIONS (3)
  - Liver disorder [Recovered/Resolved]
  - Decreased appetite [Recovered/Resolved]
  - Nausea [Recovered/Resolved]

NARRATIVE: CASE EVENT DATE: 20220524
